FAERS Safety Report 18830210 (Version 1)
Quarter: 2021Q1

REPORT INFORMATION
  Report Type: Spontaneous
  Country: US (occurrence: US)
  Receive Date: 20210202
  Receipt Date: 20210202
  Transmission Date: 20210419
  Serious: Yes (Hospitalization)
  Sender: FDA-Public Use
  Company Number: None

PATIENT
  Age: 70 Year
  Sex: Female

DRUGS (9)
  1. ROSUVASTATIN. [Concomitant]
     Active Substance: ROSUVASTATIN
  2. HYDROCHLOROT [Concomitant]
     Active Substance: HYDROCHLOROTHIAZIDE
  3. NITROGLYCERN [Concomitant]
  4. ELIQUIS [Concomitant]
     Active Substance: APIXABAN
  5. METOPROLOL. [Concomitant]
     Active Substance: METOPROLOL
  6. CLOPIDOGREL [Concomitant]
     Active Substance: CLOPIDOGREL BISULFATE
  7. FASLODEX [Concomitant]
     Active Substance: FULVESTRANT
  8. ASPIRIN. [Concomitant]
     Active Substance: ASPIRIN
  9. CAPECITABINE. [Suspect]
     Active Substance: CAPECITABINE
     Indication: BREAST CANCER FEMALE
     Route: 048
     Dates: start: 20200801

REACTIONS (2)
  - Cardiac disorder [None]
  - Therapy interrupted [None]
